FAERS Safety Report 15709531 (Version 2)
Quarter: 2020Q4

REPORT INFORMATION
  Report Type: Spontaneous
  Country: PT (occurrence: PT)
  Receive Date: 20181211
  Receipt Date: 20201030
  Transmission Date: 20210113
  Serious: Yes (Hospitalization)
  Sender: FDA-Public Use
  Company Number: PT-PFIZER INC-2018505320

PATIENT
  Sex: Male

DRUGS (4)
  1. METOCLOPRAMIDE. [Interacting]
     Active Substance: METOCLOPRAMIDE
     Indication: BACK PAIN
     Dosage: UNK
  2. METAMIZOLE [Interacting]
     Active Substance: METAMIZOLE
     Indication: BACK PAIN
     Dosage: UNK
  3. PREGABALIN. [Suspect]
     Active Substance: PREGABALIN
     Indication: BACK PAIN
     Dosage: UNK
  4. MIODIA [Interacting]
     Active Substance: CYCLOBENZAPRINE
     Indication: BACK PAIN
     Dosage: 15 MG
     Route: 048

REACTIONS (4)
  - Dysarthria [Unknown]
  - Drug interaction [Unknown]
  - Dyskinesia [Unknown]
  - Ataxia [Unknown]
